FAERS Safety Report 11544927 (Version 3)
Quarter: 2017Q3

REPORT INFORMATION
  Report Type: Spontaneous
  Country: GB (occurrence: GB)
  Receive Date: 20150924
  Receipt Date: 20170912
  Transmission Date: 20171127
  Serious: Yes (Death, Other)
  Sender: FDA-Public Use
  Company Number: GB-SUN PHARMACEUTICAL INDUSTRIES LTD-2015RR-103556

PATIENT

DRUGS (1)
  1. CODEINE [Suspect]
     Active Substance: CODEINE
     Indication: PRODUCT USED FOR UNKNOWN INDICATION
     Route: 065

REACTIONS (3)
  - Metastases to lung [Unknown]
  - Septic shock [Fatal]
  - Colon cancer recurrent [Unknown]

NARRATIVE: CASE EVENT DATE: 20130706
